FAERS Safety Report 7041464-7 (Version None)
Quarter: 2010Q4

REPORT INFORMATION
  Report Type: 
  Country: None (occurrence: None)
  Receive Date: 20101013
  Receipt Date: 20091008
  Transmission Date: 20110411
  Serious: No
  Sender: FDA-Public Use
  Company Number: US-ASTRAZENECA-2009SE09582

PATIENT
  Age: 65 Year
  Sex: Female
  Weight: 77.1 kg

DRUGS (5)
  1. SYMBICORT [Suspect]
     Indication: CHRONIC OBSTRUCTIVE PULMONARY DISEASE
     Dosage: 80/4.5; 2 PUFFS
     Route: 055
     Dates: start: 20090811
  2. LISINOPRIL [Concomitant]
  3. PROVENTIL-HFA [Concomitant]
  4. SPIRIVA [Concomitant]
  5. ZYRTEC [Concomitant]

REACTIONS (2)
  - DEVICE FAILURE [None]
  - DYSPNOEA [None]
